FAERS Safety Report 21233419 (Version 2)
Quarter: 2022Q4

REPORT INFORMATION
  Report Type: Other
  Country: CN (occurrence: CN)
  Receive Date: 20220819
  Receipt Date: 20221006
  Transmission Date: 20230113
  Serious: Yes (Hospitalization)
  Sender: FDA-Public Use
  Company Number: CN-GE HEALTHCARE-2022CSU005733

PATIENT
  Age: 78 Year
  Sex: Male
  Weight: 60 kg

DRUGS (6)
  1. VISIPAQUE [Suspect]
     Active Substance: IODIXANOL
     Indication: Vascular imaging
     Dosage: 200 ML, SINGLE
     Route: 042
     Dates: start: 20220809, end: 20220809
  2. VISIPAQUE [Suspect]
     Active Substance: IODIXANOL
     Indication: Cerebral infarction
  3. LIDOCAINE HYDROCHLORIDE [Concomitant]
     Active Substance: LIDOCAINE HYDROCHLORIDE
     Indication: Vascular imaging
     Dosage: 0.2 GM, QD
     Route: 061
     Dates: start: 20220809, end: 20220809
  4. LIDOCAINE HYDROCHLORIDE [Concomitant]
     Active Substance: LIDOCAINE HYDROCHLORIDE
     Indication: Anaesthesia
  5. HEPARIN SODIUM [Concomitant]
     Active Substance: HEPARIN SODIUM
     Indication: Vascular imaging
     Dosage: 25000 IU, QD
     Route: 042
     Dates: start: 20220809, end: 20220809
  6. HEPARIN SODIUM [Concomitant]
     Active Substance: HEPARIN SODIUM
     Indication: Product used for unknown indication

REACTIONS (7)
  - Contusion [Recovering/Resolving]
  - Tongue discolouration [Recovered/Resolved]
  - Skin discolouration [Recovered/Resolved]
  - Laryngeal oedema [Recovered/Resolved]
  - Dyspnoea [Recovering/Resolving]
  - Tongue oedema [Recovered/Resolved]
  - Localised oedema [Recovering/Resolving]

NARRATIVE: CASE EVENT DATE: 20220809
